FAERS Safety Report 6259969-5 (Version None)
Quarter: 2009Q3

REPORT INFORMATION
  Report Type: 
  Country: None (occurrence: None)
  Receive Date: 20090706
  Receipt Date: 20090622
  Transmission Date: 20100115
  Serious: No
  Sender: FDA-Public Use
  Company Number: D01200904112

PATIENT
  Age: 71 Year
  Sex: Male

DRUGS (18)
  1. TICLOPIDINE HCL [Suspect]
     Indication: ANGINA PECTORIS
     Dosage: 100 MG BID, ORAL; TIME TO ONSET : 6 DAYS
     Route: 048
     Dates: start: 20090615, end: 20090621
  2. TICLOPIDINE HCL [Suspect]
     Indication: MYOCARDIAL INFARCTION
     Dosage: 100 MG BID, ORAL; TIME TO ONSET : 6 DAYS
     Route: 048
     Dates: start: 20090615, end: 20090621
  3. ASPIRIN [Concomitant]
  4. LANSOPRAZOLE [Concomitant]
  5. ISOSORBIDE MONONITRATE [Concomitant]
  6. NORVASC [Concomitant]
  7. DIOVAN [Concomitant]
  8. SIGMART (NICORANDIL) [Suspect]
  9. MAGNESIUM OXIDE [Suspect]
  10. CEFZON (CEFDINIR) [Suspect]
  11. PENTAZOCINE LACTATE [Concomitant]
  12. ATROPINE [Concomitant]
  13. NOVO HEPARIN (HEPARIN CALCIUM) [Suspect]
  14. VEEN-F [Concomitant]
  15. XYLOCAINE [Concomitant]
  16. GLYCERYL TRINITRATE [Concomitant]
  17. IOPAMIDOL [Concomitant]
  18. LACTEC (ELECTROLYTES INFUSION) [Concomitant]

REACTIONS (12)
  - ALANINE AMINOTRANSFERASE INCREASED [None]
  - ASPARTATE AMINOTRANSFERASE INCREASED [None]
  - BACK PAIN [None]
  - BLOOD ALKALINE PHOSPHATASE INCREASED [None]
  - BLOOD CREATINE PHOSPHOKINASE INCREASED [None]
  - BLOOD LACTATE DEHYDROGENASE INCREASED [None]
  - CHOLINERGIC SYNDROME [None]
  - CORONARY ARTERY STENOSIS [None]
  - HEPATIC FUNCTION ABNORMAL [None]
  - HYPOPERFUSION [None]
  - PERICARDITIS [None]
  - PROCEDURAL COMPLICATION [None]
